FAERS Safety Report 8722152 (Version 2)
Quarter: 2012Q4

REPORT INFORMATION
  Report Type: 
  Country: US (occurrence: US)
  Receive Date: 20120814
  Receipt Date: 20120905
  Transmission Date: 20130627
  Serious: Yes (Other)
  Sender: FDA-Public Use
  Company Number: US-ASTRAZENECA-2012SE54226

PATIENT
  Age: 64 Year
  Sex: Female
  Weight: 82.1 kg

DRUGS (11)
  1. SYMBICORT [Suspect]
     Indication: CHRONIC OBSTRUCTIVE PULMONARY DISEASE
     Dosage: UNKNOWN FREQUENCY
     Route: 055
     Dates: start: 20110707, end: 20120801
  2. SYMBICORT [Suspect]
     Indication: ASTHMA
     Dosage: UNKNOWN FREQUENCY
     Route: 055
     Dates: start: 20110707, end: 20120801
  3. JANUMET [Concomitant]
     Indication: DIABETES MELLITUS
  4. SINGULAIR [Concomitant]
  5. INJECTED INSULIN [Concomitant]
     Indication: DIABETES MELLITUS
  6. VITAMIN D [Concomitant]
  7. WATER PILL [Concomitant]
  8. LIPITOR [Concomitant]
  9. LEVEMIR [Concomitant]
     Indication: DIABETES MELLITUS
  10. PROAIR [Concomitant]
     Indication: ASTHMA
  11. TRIAMTERENE HCTZ [Concomitant]
     Indication: HYPERTENSION

REACTIONS (4)
  - Skin atrophy [Recovering/Resolving]
  - Excoriation [Recovering/Resolving]
  - Contusion [Recovering/Resolving]
  - Off label use [Unknown]
